FAERS Safety Report 6731242-8 (Version None)
Quarter: 2010Q2

REPORT INFORMATION
  Report Type: 
  Country: None (occurrence: None)
  Receive Date: 20100518
  Receipt Date: 20100513
  Transmission Date: 20101027
  Serious: Yes (Other)
  Sender: FDA-Public Use
  Company Number: CA-ABBOTT-10P-028-0640438-00

PATIENT
  Sex: Male
  Weight: 98.064 kg

DRUGS (21)
  1. KALETRA [Suspect]
     Indication: HIV INFECTION
     Dosage: 200/50 MG, 2 TABS BID
     Route: 048
     Dates: start: 20080821
  2. TRUVADA [Concomitant]
     Indication: HIV INFECTION
     Dosage: 200/300MG QD
     Route: 048
     Dates: start: 20080821
  3. VASOTEC [Concomitant]
     Indication: HYPERTENSION
     Route: 048
  4. CRESTOR [Concomitant]
     Indication: BLOOD CHOLESTEROL
     Route: 048
  5. RAN-RABEPRAZOLE [Concomitant]
     Indication: GASTROOESOPHAGEAL REFLUX DISEASE
  6. RHOVANE [Concomitant]
     Indication: DRUG USE FOR UNKNOWN INDICATION
     Route: 048
  7. LYRICA [Concomitant]
     Indication: POST HERPETIC NEURALGIA
     Route: 048
  8. GABAPENTIN [Concomitant]
     Indication: POST HERPETIC NEURALGIA
     Route: 048
  9. RATIO-TAMSULOSIN [Concomitant]
     Indication: DRUG USE FOR UNKNOWN INDICATION
     Route: 048
  10. XYLOCAINE [Concomitant]
     Indication: PAIN IN EXTREMITY
     Dosage: GEL
     Route: 061
  11. NEURAGEN [Concomitant]
     Indication: PAIN IN EXTREMITY
     Route: 061
  12. LACTULOSE [Concomitant]
     Indication: GASTROINTESTINAL DISORDER
     Route: 048
  13. PERCOCET [Concomitant]
     Indication: PAIN
     Route: 048
  14. VALTREX [Concomitant]
     Indication: DRUG USE FOR UNKNOWN INDICATION
     Dosage: QD, AS NEEDED
     Route: 048
  15. PROZAC [Concomitant]
     Indication: DEPRESSION
     Route: 048
  16. SENOKOT [Concomitant]
     Indication: CONSTIPATION PROPHYLAXIS
     Route: 048
  17. PARIET [Concomitant]
     Indication: DRUG USE FOR UNKNOWN INDICATION
     Route: 048
  18. COLACE [Concomitant]
     Indication: CONSTIPATION PROPHYLAXIS
     Route: 048
  19. FLUCONAZOLE [Concomitant]
     Indication: DRUG USE FOR UNKNOWN INDICATION
  20. GRAVOL TAB [Concomitant]
     Indication: NAUSEA
  21. FLEET [Concomitant]
     Indication: GASTROINTESTINAL DISORDER
     Route: 054

REACTIONS (15)
  - ACTIVITIES OF DAILY LIVING IMPAIRED [None]
  - AORTIC INJURY [None]
  - ASTHENIA [None]
  - BLOOD GLUCOSE INCREASED [None]
  - BLOOD PHOSPHORUS DECREASED [None]
  - DIARRHOEA [None]
  - DIZZINESS [None]
  - FAECES DISCOLOURED [None]
  - HEPATIC STEATOSIS [None]
  - MALAISE [None]
  - SKIN ODOUR ABNORMAL [None]
  - TOOTH INFECTION [None]
  - TOOTH REPAIR [None]
  - TREMOR [None]
  - WEIGHT INCREASED [None]
